FAERS Safety Report 9575434 (Version 1)
Quarter: 2013Q4

REPORT INFORMATION
  Report Type: Spontaneous
  Country: US (occurrence: US)
  Receive Date: 20131001
  Receipt Date: 20131001
  Transmission Date: 20140711
  Serious: No
  Sender: FDA-Public Use
  Company Number: US-AMGEN-USASP2013002178

PATIENT
  Age: 46 Year
  Sex: Female
  Weight: 99.77 kg

DRUGS (3)
  1. ENBREL [Suspect]
     Indication: PSORIASIS
     Dosage: 50 MG, 2 TIMES/WK, 72 HOURS APART
     Route: 058
  2. IBUPROFEN [Concomitant]
     Dosage: 200 MG, UNK
  3. ATARAX                             /00058401/ [Concomitant]
     Dosage: 10 MG/5ML

REACTIONS (1)
  - Injection site erythema [Unknown]
